FAERS Safety Report 11474612 (Version 1)
Quarter: 2015Q3

REPORT INFORMATION
  Report Type: Spontaneous
  Country: US (occurrence: None)
  Receive Date: 20150908
  Receipt Date: 20150908
  Transmission Date: 20151125
  Serious: No
  Sender: FDA-Public Use
  Company Number: None

PATIENT
  Age: 54 Year
  Sex: Female

DRUGS (14)
  1. DULOXETINE. [Concomitant]
     Active Substance: DULOXETINE
  2. CEPHALEXIN. [Concomitant]
     Active Substance: CEPHALEXIN
  3. LAMOTRIGINE. [Concomitant]
     Active Substance: LAMOTRIGINE
  4. BACLOFEN. [Concomitant]
     Active Substance: BACLOFEN
  5. LATANOPROST. [Concomitant]
     Active Substance: LATANOPROST
  6. VENLAFAXINE [Concomitant]
     Active Substance: VENLAFAXINE HYDROCHLORIDE
  7. EFFEXOR XR [Concomitant]
     Active Substance: VENLAFAXINE HYDROCHLORIDE
  8. GLATOPA [Suspect]
     Active Substance: GLATIRAMER ACETATE
     Indication: MULTIPLE SCLEROSIS
     Route: 058
     Dates: start: 20150720
  9. GABAPENTIN. [Concomitant]
     Active Substance: GABAPENTIN
  10. OXYBUTYNIN [Concomitant]
     Active Substance: OXYBUTYNIN
  11. LISINOPRIL. [Concomitant]
     Active Substance: LISINOPRIL
  12. TIMOLOL MAL [Concomitant]
  13. PROVIGIL [Concomitant]
     Active Substance: MODAFINIL
  14. SENNALAX-S [Concomitant]
     Active Substance: DOCUSATE SODIUM\SENNOSIDES

REACTIONS (2)
  - Incorrect dose administered [None]
  - Device malfunction [None]

NARRATIVE: CASE EVENT DATE: 20150902
